FAERS Safety Report 19067441 (Version 2)
Quarter: 2021Q2

REPORT INFORMATION
  Report Type: Spontaneous
  Country: US (occurrence: US)
  Receive Date: 20210329
  Receipt Date: 20210402
  Transmission Date: 20210717
  Serious: No
  Sender: FDA-Public Use
  Company Number: US-TAKEDA-2021TUS018086

PATIENT
  Sex: Female
  Weight: 72 kg

DRUGS (14)
  1. SYNTHROID [Concomitant]
     Active Substance: LEVOTHYROXINE SODIUM
  2. HYDROXYCHLOROQUINE [Concomitant]
     Active Substance: HYDROXYCHLOROQUINE
  3. KEYTRUDA [Concomitant]
     Active Substance: PEMBROLIZUMAB
  4. DOXYCYCLINE. [Concomitant]
     Active Substance: DOXYCYCLINE
  5. ACETAMINOPHEN. [Concomitant]
     Active Substance: ACETAMINOPHEN
  6. VITAMIN B?6 [Concomitant]
     Active Substance: PYRIDOXINE
  7. LIDOCAINE. [Concomitant]
     Active Substance: LIDOCAINE
  8. GAMMAGARD LIQUID [Suspect]
     Active Substance: HUMAN IMMUNOGLOBULIN G
     Indication: DERMATOMYOSITIS
     Dosage: 15 GRAM
     Route: 058
     Dates: start: 20210216
  9. EPINEPHRINE. [Concomitant]
     Active Substance: EPINEPHRINE
  10. XELJANZ XR [Concomitant]
     Active Substance: TOFACITINIB CITRATE
  11. GAMMAGARD LIQUID [Suspect]
     Active Substance: HUMAN IMMUNOGLOBULIN G
     Indication: POLYMYOSITIS
     Dosage: 15 GRAM, 2/WEEK
     Route: 058
     Dates: start: 20210216
  12. DIPHENHYDRAMINE. [Concomitant]
     Active Substance: DIPHENHYDRAMINE
  13. VITAMIN D3 [Concomitant]
     Active Substance: CHOLECALCIFEROL
  14. PANTOPRAZOLE [Concomitant]
     Active Substance: PANTOPRAZOLE

REACTIONS (3)
  - Pyrexia [Unknown]
  - Off label use [Unknown]
  - Headache [Unknown]
